FAERS Safety Report 4461240-9 (Version None)
Quarter: 2004Q3

REPORT INFORMATION
  Report Type: 
  Country: None (occurrence: None)
  Receive Date: 20040928
  Receipt Date: 20040804
  Transmission Date: 20050211
  Serious: Yes (Hospitalization)
  Sender: FDA-Public Use
  Company Number: DE-ROCHE-376657

PATIENT
  Age: 70 Year
  Sex: Male

DRUGS (11)
  1. INTERFERON ALFA-2A [Suspect]
     Indication: DRUG USE FOR UNKNOWN INDICATION
     Route: 042
     Dates: end: 20040216
  2. INTERFERON ALFA-2A [Suspect]
     Route: 042
     Dates: end: 20040301
  3. CAPTO [Concomitant]
  4. SPIRONOLACTONE [Concomitant]
  5. CELEBREX [Concomitant]
  6. PALLADON [Concomitant]
  7. PANTOPRAZOLE SODIUM [Concomitant]
     Indication: PROPHYLAXIS
  8. L-THYROXIN 100 [Concomitant]
  9. DRONABINOL [Concomitant]
  10. ZOMETA [Concomitant]
     Route: 042
  11. SPIRO [Concomitant]

REACTIONS (4)
  - ALKALOSIS [None]
  - CYANOSIS [None]
  - DYSPNOEA [None]
  - LUNG DISORDER [None]
